FAERS Safety Report 9885385 (Version 10)
Quarter: 2014Q2

REPORT INFORMATION
  Report Type: Spontaneous
  Country: US (occurrence: US)
  Receive Date: 20140210
  Receipt Date: 20140519
  Transmission Date: 20141212
  Serious: No
  Sender: FDA-Public Use
  Company Number: US-PFIZER INC-2014036654

PATIENT
  Age: 43 Year
  Sex: Male
  Weight: 108.84 kg

DRUGS (16)
  1. LYRICA [Suspect]
     Indication: NEURALGIA
     Dosage: 150 MG, 3 TIMES A DAY
     Route: 048
     Dates: start: 201401, end: 2014
  2. LYRICA [Suspect]
     Indication: DIABETIC NEUROPATHY
     Dosage: 75 MG, 2X/DAY
     Route: 048
     Dates: start: 2014
  3. LYRICA [Suspect]
     Indication: FIBROMYALGIA
     Dosage: 350 MG, 3X/DAY
     Route: 048
  4. LYRICA [Suspect]
     Indication: DIABETIC NEUROPATHY
  5. BYDUREON [Concomitant]
     Indication: DIABETES MELLITUS
     Dosage: UNK (1 SHOT), WEEKLY
  6. HUMIRA [Concomitant]
     Indication: RHEUMATOID ARTHRITIS
     Dosage: UNK
  7. HYDROCODONE [Concomitant]
     Dosage: UNK
  8. FLEXERIL [Concomitant]
     Dosage: UNK
  9. KETOPROFEN [Concomitant]
     Dosage: UNK
  10. HYDROXYZINE [Concomitant]
     Dosage: UNK
  11. AMITRIPTYLINE [Concomitant]
     Dosage: UNK
  12. LASIX [Concomitant]
     Dosage: UNK
  13. XANAX [Concomitant]
     Indication: SLEEP DISORDER
     Dosage: UNK
  14. LISINOPRIL [Concomitant]
     Dosage: UNK
  15. DILTIAZEM [Concomitant]
     Dosage: UNK
  16. SIMPONI [Concomitant]
     Indication: PSORIATIC ARTHROPATHY
     Dosage: UNK (1 SHOT), MONTHLY

REACTIONS (7)
  - Malaise [Not Recovered/Not Resolved]
  - Hypoaesthesia [Not Recovered/Not Resolved]
  - Headache [Not Recovered/Not Resolved]
  - Pain [Not Recovered/Not Resolved]
  - Burning sensation [Unknown]
  - Impaired work ability [Unknown]
  - Weight increased [Unknown]
